FAERS Safety Report 6172666-X (Version None)
Quarter: 2009Q2

REPORT INFORMATION
  Report Type: 
  Country: None (occurrence: None)
  Receive Date: 20090430
  Receipt Date: 20090421
  Transmission Date: 20091009
  Serious: Yes (Hospitalization, Other)
  Sender: FDA-Public Use
  Company Number: HU-BAXTER-2009BH005949

PATIENT
  Sex: Female
  Weight: 53 kg

DRUGS (2)
  1. TISSEEL/I-040202 [Suspect]
     Indication: TIBIA FRACTURE
     Route: 065
     Dates: start: 20090328, end: 20090328
  2. MONOPRIL [Concomitant]
     Indication: HYPERTENSION
     Route: 048
     Dates: start: 19990827

REACTIONS (2)
  - INFLAMMATION OF WOUND [None]
  - SOFT TISSUE NECROSIS [None]
